FAERS Safety Report 8213273-4 (Version None)
Quarter: 2012Q1

REPORT INFORMATION
  Report Type: 
  Country: None (occurrence: None)
  Receive Date: 20120315
  Receipt Date: 20120313
  Transmission Date: 20120608
  Serious: Yes (Other)
  Sender: FDA-Public Use
  Company Number: JP-PFIZER INC-2012060014

PATIENT
  Age: 82 Year
  Sex: Male

DRUGS (5)
  1. ALPRAZOLAM [Concomitant]
     Dosage: 0.4 MG/DAY
     Route: 048
  2. ESTAZOLAM [Concomitant]
     Dosage: 2 MG/DAY
     Route: 048
  3. ASPIRIN [Concomitant]
     Dosage: 100 MG/DAY
     Route: 048
  4. LYRICA [Suspect]
     Indication: POST HERPETIC NEURALGIA
     Dosage: 150 MG, DAILY
     Route: 048
     Dates: start: 20120214, end: 20120101
  5. NORVASC [Concomitant]
     Dosage: 2.5 MG/DAY
     Route: 048

REACTIONS (3)
  - FEELING ABNORMAL [None]
  - HYPOAESTHESIA [None]
  - FEELING HOT [None]
